FAERS Safety Report 6905399-X (Version None)
Quarter: 2010Q3

REPORT INFORMATION
  Report Type: 
  Country: None (occurrence: None)
  Receive Date: 20100804
  Receipt Date: 20100729
  Transmission Date: 20110219
  Serious: Yes (Life-Threatening, Hospitalization, Other)
  Sender: FDA-Public Use
  Company Number: CA-CELGENEUS-028-21880-10062315

PATIENT
  Sex: Male
  Weight: 70 kg

DRUGS (8)
  1. REVLIMID [Suspect]
     Indication: MULTIPLE MYELOMA
     Route: 048
     Dates: start: 20100210
  2. REVLIMID [Suspect]
     Route: 048
     Dates: start: 20100518, end: 20100601
  3. DEXAMETHASONE [Suspect]
     Indication: MULTIPLE MYELOMA
     Route: 065
     Dates: start: 20100518
  4. DEXAMETHASONE [Suspect]
     Route: 065
     Dates: start: 20100210
  5. WARFARIN SODIUM [Suspect]
     Route: 048
     Dates: start: 20100523, end: 20100618
  6. SIMVASTATIN [Concomitant]
     Indication: PRODUCT USED FOR UNKNOWN INDICATION
     Route: 065
     Dates: start: 20090902
  7. METOPROLOL [Concomitant]
     Indication: PRODUCT USED FOR UNKNOWN INDICATION
     Route: 065
     Dates: start: 20090902
  8. BUDESONIDE [Concomitant]
     Indication: PRODUCT USED FOR UNKNOWN INDICATION
     Dosage: 2 PUFFS
     Route: 065
     Dates: start: 20100511

REACTIONS (7)
  - ACTIVATED PARTIAL THROMBOPLASTIN TIME PROLONGED [None]
  - FIBRIN D DIMER INCREASED [None]
  - HAEMATURIA [None]
  - HAEMOGLOBIN DECREASED [None]
  - INTERNATIONAL NORMALISED RATIO INCREASED [None]
  - PULMONARY EMBOLISM [None]
  - THROMBOSIS [None]
